FAERS Safety Report 9841926 (Version 1)
Quarter: 2014Q1

REPORT INFORMATION
  Report Type: Spontaneous
  Country: US (occurrence: None)
  Receive Date: 20140124
  Receipt Date: 20140124
  Transmission Date: 20141002
  Serious: Yes (Other)
  Sender: FDA-Public Use
  Company Number: None

PATIENT
  Sex: Female
  Weight: 101 kg

DRUGS (10)
  1. TOPICAL MUSCLE AND PAIN RELIEF GEL [Suspect]
     Indication: BACK DISORDER
     Dosage: 2X DAY ON SKIN??10/4 OR 5/2013
     Dates: start: 201310
  2. CALCIUM [Concomitant]
  3. ALLEVE [Concomitant]
  4. SERTRALINE [Concomitant]
  5. MIRTAZAPINE [Concomitant]
  6. AMLODIPINE [Concomitant]
  7. ASPIRIN [Concomitant]
  8. LATANOPROST [Concomitant]
  9. NASONEX [Concomitant]
  10. RANITIDINE [Concomitant]

REACTIONS (1)
  - Burning sensation [None]
